FAERS Safety Report 15361898 (Version 1)
Quarter: 2018Q3

REPORT INFORMATION
  Report Type: Spontaneous
  Country: US (occurrence: US)
  Receive Date: 20180907
  Receipt Date: 20180907
  Transmission Date: 20181010
  Serious: Yes (Other)
  Sender: FDA-Public Use
  Company Number: US-AVADEL LEGACY PHARMACEUTICALS, LLC-2018AVA00289

PATIENT
  Age: 18 Year
  Sex: Male

DRUGS (2)
  1. NOCTIVA [Suspect]
     Active Substance: DESMOPRESSIN ACETATE
     Indication: ENURESIS
     Dosage: 0.83 ?G, 1X/DAY IN EACH NOSTRIL AT BEDTIME
     Route: 045
     Dates: start: 20180802
  2. CLARITIN [Concomitant]
     Active Substance: LORATADINE
     Dosage: 10 MG, 1X/DAY BEFORE BED
     Route: 048

REACTIONS (11)
  - Headache [Recovered/Resolved]
  - Pulse abnormal [Unknown]
  - Disorientation [Recovered/Resolved]
  - Off label use [Unknown]
  - Retching [Unknown]
  - Seizure [Recovered/Resolved]
  - Confusional state [Recovered/Resolved]
  - Fatigue [Unknown]
  - Gait disturbance [Unknown]
  - Vomiting [Unknown]
  - Nausea [Unknown]

NARRATIVE: CASE EVENT DATE: 20180802
